FAERS Safety Report 10184956 (Version 1)
Quarter: 2014Q2

REPORT INFORMATION
  Report Type: Spontaneous
  Country: IT (occurrence: IT)
  Receive Date: 20140521
  Receipt Date: 20140521
  Transmission Date: 20141212
  Serious: Yes (Other)
  Sender: FDA-Public Use
  Company Number: IT-MYLANLABS-2014S1010748

PATIENT
  Age: 43 Year
  Sex: Male
  Weight: 75 kg

DRUGS (3)
  1. PAROXETINE HYDROCHLORIDE [Suspect]
     Indication: DEPRESSION
     Dosage: 80 MG TOTAL
     Route: 048
     Dates: end: 20140316
  2. RISPERDAL [Suspect]
     Indication: DEPRESSION
     Dosage: 32 MG TOTAL
     Route: 048
     Dates: end: 20140316
  3. RIVOTRIL [Suspect]
     Indication: DEPRESSION
     Dosage: 5 MG TOTAL
     Route: 048
     Dates: end: 20140316

REACTIONS (3)
  - Alcohol abuse [Recovering/Resolving]
  - Drug abuse [Recovering/Resolving]
  - Intentional self-injury [Recovering/Resolving]
